FAERS Safety Report 17430331 (Version 1)
Quarter: 2020Q1

REPORT INFORMATION
  Report Type: Other
  Country: TR (occurrence: TR)
  Receive Date: 20200218
  Receipt Date: 20200218
  Transmission Date: 20200409
  Serious: Yes (Hospitalization, Other)
  Sender: FDA-Public Use
  Company Number: TR-DENTSPLY-2020SCDP000058

PATIENT
  Age: 58 Year
  Sex: Female

DRUGS (4)
  1. LIDOCAINE. [Suspect]
     Active Substance: LIDOCAINE
     Indication: NERVE BLOCK
     Dosage: 10 MILLILITER, TOTAL, 40 ML OF LA CONTAINED 20 ML OF BUPIVACAINE, 10 ML OF LIDOCAINE, 9 ML OF SALINE
  2. SODIUM CHLORIDE. [Concomitant]
     Active Substance: SODIUM CHLORIDE
     Indication: NERVE BLOCK
     Dosage: 9 MILLILITER, TOTAL
  3. METHYLPREDNISOLONE. [Concomitant]
     Active Substance: METHYLPREDNISOLONE
     Indication: NERVE BLOCK
     Dosage: 1 MILLILITER, TOTAL, 40 MG/ML
  4. BUPIVACAINE. [Suspect]
     Active Substance: BUPIVACAINE
     Indication: NERVE BLOCK
     Dosage: 20 MILLILITER, TOTAL, 40 ML OF LA CONTAINED 20 ML OF BUPIVACAINE, 10 ML OF LIDOCAINE, 9 ML OF SALINE

REACTIONS (5)
  - Apathy [Recovered/Resolved]
  - Loss of consciousness [Recovered/Resolved]
  - Local anaesthetic systemic toxicity [Recovered/Resolved]
  - Seizure [Recovered/Resolved]
  - Aphasia [Recovered/Resolved]
